FAERS Safety Report 9157388 (Version 1)
Quarter: 2013Q1

REPORT INFORMATION
  Report Type: Spontaneous
  Country: US (occurrence: US)
  Receive Date: 20130312
  Receipt Date: 20130312
  Transmission Date: 20140127
  Serious: Yes (Other)
  Sender: FDA-Public Use
  Company Number: US-JNJFOC-20130302468

PATIENT
  Age: 56 Year
  Sex: Female
  Weight: 78.47 kg

DRUGS (2)
  1. NEOSPORIN ORIGINAL [Suspect]
     Indication: SCRATCH
     Dosage: LIKE A PEA SIZE AMOUNT, 5-6 TIMES OVER 3-4 DAYS
     Route: 061
     Dates: start: 201302, end: 20130228
  2. AUGMENTIN [Concomitant]
     Indication: ANTIBIOTIC THERAPY
     Route: 065
     Dates: start: 20130223

REACTIONS (5)
  - Application site vesicles [Recovering/Resolving]
  - Application site discharge [Recovering/Resolving]
  - Application site rash [Recovering/Resolving]
  - Application site pain [Recovering/Resolving]
  - Expired drug administered [Unknown]
